FAERS Safety Report 21166252 (Version 1)
Quarter: 2022Q3

REPORT INFORMATION
  Report Type: Spontaneous
  Country: ES (occurrence: ES)
  Receive Date: 20220803
  Receipt Date: 20220803
  Transmission Date: 20221027
  Serious: Yes (Other)
  Sender: FDA-Public Use
  Company Number: ES-UCBSA-2022042248

PATIENT
  Age: 23 Year
  Sex: Male

DRUGS (17)
  1. VIMPAT [Suspect]
     Active Substance: LACOSAMIDE
     Indication: Seizure
     Dosage: 500 MILLIGRAM PER DAY
  2. BRIVIACT [Suspect]
     Active Substance: BRIVARACETAM
     Indication: Seizure
     Dosage: 400 MILLIGRAM PER DAY
  3. PERAMPANEL [Concomitant]
     Active Substance: PERAMPANEL
     Indication: Seizure
     Dosage: 12 MILLIGRAM PER DAY
  4. PERAMPANEL [Concomitant]
     Active Substance: PERAMPANEL
     Dosage: 20 MILLIGRAM PER DAY
  5. PERAMPANEL [Concomitant]
     Active Substance: PERAMPANEL
     Dosage: 12 MILLIGRAM PER DAY
  6. PHENOBARBITAL [Concomitant]
     Active Substance: PHENOBARBITAL
     Indication: Seizure
     Dosage: 800 MILLIGRAM PER DAY
  7. PHENYTOIN [Concomitant]
     Active Substance: PHENYTOIN
     Indication: Seizure
     Dosage: 800 MILLIGRAM PER DAY
  8. CLONAZEPAM [Concomitant]
     Active Substance: CLONAZEPAM
     Indication: Seizure
     Dosage: 3 MILLIGRAM PER DAY
  9. ZONISAMIDE [Concomitant]
     Active Substance: ZONISAMIDE
     Indication: Seizure
     Dosage: 200 MILLIGRAM PER DAY
  10. ZONISAMIDE [Concomitant]
     Active Substance: ZONISAMIDE
     Dosage: 500 MILLIGRAM PER DAY
  11. VALPROIC ACID [Concomitant]
     Active Substance: VALPROIC ACID
     Indication: Seizure
     Dosage: 1500 MILLIGRAM PER DAY
  12. VALPROIC ACID [Concomitant]
     Active Substance: VALPROIC ACID
     Dosage: 3400 MILLIGRAM PER DAY
  13. CANNABIDIOL [Concomitant]
     Active Substance: CANNABIDIOL
     Indication: Seizure
     Dosage: UNKNOWN DOSE
  14. CANNABIDIOL [Concomitant]
     Active Substance: CANNABIDIOL
     Dosage: 10 MILLIGRAM PER DAY
  15. METHYLPREDNISOLONE [Concomitant]
     Active Substance: METHYLPREDNISOLONE
     Indication: Seizure
     Dosage: 1 GRAM PER DAY
  16. METHYLPREDNISOLONE [Concomitant]
     Active Substance: METHYLPREDNISOLONE
     Dosage: 0.4 GRAM PER KILOGRAM PER DAY
     Route: 042
  17. TOCILIZUMAB [Concomitant]
     Active Substance: TOCILIZUMAB
     Indication: Seizure
     Dosage: 8 MILLIGRAM/KILOGRAM PER DAY

REACTIONS (6)
  - Status epilepticus [Recovered/Resolved]
  - Seizure [Recovering/Resolving]
  - Partial seizures [Recovering/Resolving]
  - Partial seizures with secondary generalisation [Recovering/Resolving]
  - Abnormal behaviour [Unknown]
  - Memory impairment [Unknown]
